FAERS Safety Report 5423152-3 (Version None)
Quarter: 2007Q3

REPORT INFORMATION
  Report Type: 
  Country: None (occurrence: None)
  Receive Date: 20070821
  Receipt Date: 20070809
  Transmission Date: 20080115
  Serious: Yes (Other)
  Sender: FDA-Public Use
  Company Number: 100#03#2007-02973

PATIENT
  Age: 19 Year
  Sex: Male

DRUGS (3)
  1. CISPLATIN [Suspect]
     Indication: T-CELL LYMPHOMA STAGE IV
     Dosage: 100 MG/M2; DAY 15
  2. GEMCITABINE [Suspect]
     Indication: T-CELL LYMPHOMA STAGE IV
     Dosage: 1 G/M2; DAY 1, 8, 15
  3. METHYLPREDNISOLONE [Suspect]
     Indication: T-CELL LYMPHOMA STAGE IV
     Dosage: 1 G; DAYS 1-5

REACTIONS (1)
  - NEUTROPENIA [None]
